FAERS Safety Report 26077368 (Version 1)
Quarter: 2025Q4

REPORT INFORMATION
  Report Type: Spontaneous
  Country: US (occurrence: US)
  Receive Date: 20251121
  Receipt Date: 20251121
  Transmission Date: 20260117
  Serious: No
  Sender: ABBVIE
  Company Number: US-ABBVIE-6552370

PATIENT
  Sex: Female

DRUGS (1)
  1. CYCLOSPORINE [Suspect]
     Active Substance: CYCLOSPORINE
     Indication: Dry eye
     Dosage: ONE DROP IN EACH EYE, TWICE A DAY, STRENGTH:  0.05 %, FORMULATION: EMULSION
     Route: 047

REACTIONS (4)
  - Vision blurred [Unknown]
  - Eye disorder [Unknown]
  - Ocular discomfort [Unknown]
  - Ocular discomfort [Unknown]
